FAERS Safety Report 5531540-X (Version None)
Quarter: 2007Q4

REPORT INFORMATION
  Report Type: 
  Country: None (occurrence: None)
  Receive Date: 20071203
  Receipt Date: 20071128
  Transmission Date: 20080405
  Serious: Yes (Other)
  Sender: FDA-Public Use
  Company Number: PHEH2007US15042

PATIENT
  Age: 79 Year
  Sex: Male

DRUGS (3)
  1. METOPROLOL TARTRATE [Suspect]
     Indication: HYPERTENSION
     Dosage: 12.5 MG, BID
     Route: 048
  2. FUROSEMIDE [Concomitant]
     Dosage: 40 MG, QD
  3. LISINOPRIL [Concomitant]
     Indication: HYPERTENSION
     Dosage: 1.25 MG, QD

REACTIONS (6)
  - ARTERIAL DISORDER [None]
  - CARDIAC DISORDER [None]
  - CEREBROVASCULAR ACCIDENT [None]
  - HYPOACUSIS [None]
  - NERVOUSNESS [None]
  - TYPE 2 DIABETES MELLITUS [None]
